FAERS Safety Report 16220112 (Version 2)
Quarter: 2019Q2

REPORT INFORMATION
  Report Type: Report from Study
  Country: US (occurrence: US)
  Receive Date: 20190420
  Receipt Date: 20190425
  Transmission Date: 20190711
  Serious: No
  Sender: FDA-Public Use
  Company Number: US-AMGEN-USASP2019059858

PATIENT
  Age: 59 Year
  Sex: Female

DRUGS (6)
  1. ENBREL [Suspect]
     Active Substance: ETANERCEPT
     Dosage: 50 MILLIGRAM, QWK
     Route: 065
  2. ENBREL [Suspect]
     Active Substance: ETANERCEPT
     Indication: SPONDYLOARTHROPATHY
     Dosage: UNK UNK, QWK
     Route: 065
     Dates: start: 2018
  3. ENBREL [Suspect]
     Active Substance: ETANERCEPT
     Indication: ANKYLOSING SPONDYLITIS
     Dosage: UNK UNK, QWK
     Route: 065
     Dates: end: 2019
  4. ENBREL [Suspect]
     Active Substance: ETANERCEPT
     Dosage: UNK UNK, QWK
     Route: 065
     Dates: start: 2019
  5. CELEXA [CELECOXIB] [Concomitant]
     Active Substance: CELECOXIB
     Dosage: UNK
  6. UNITHROID [Concomitant]
     Active Substance: LEVOTHYROXINE SODIUM
     Dosage: UNK

REACTIONS (5)
  - Injection site pain [Unknown]
  - Injection site swelling [Unknown]
  - Injection site haemorrhage [Unknown]
  - Fatigue [Unknown]
  - Malaise [Unknown]

NARRATIVE: CASE EVENT DATE: 20190408
